FAERS Safety Report 12256055 (Version 1)
Quarter: 2016Q2

REPORT INFORMATION
  Report Type: Spontaneous
  Country: GB (occurrence: GB)
  Receive Date: 20160412
  Receipt Date: 20160412
  Transmission Date: 20160815
  Serious: Yes (Other)
  Sender: FDA-Public Use
  Company Number: GB-ASTRAZENECA-2016SE36297

PATIENT
  Age: 62 Year
  Sex: Male
  Weight: 120 kg

DRUGS (16)
  1. AMLODIPINE [Concomitant]
     Active Substance: AMLODIPINE BESYLATE
     Dates: start: 20151016
  2. ASPIRIN. [Concomitant]
     Active Substance: ASPIRIN
     Indication: ANTICOAGULANT THERAPY
     Dates: start: 20160321
  3. MONTELUKAST [Concomitant]
     Active Substance: MONTELUKAST SODIUM
     Dates: start: 20151016
  4. SILDENAFIL. [Concomitant]
     Active Substance: SILDENAFIL
     Dosage: 1 DF AS DIRECTED
     Dates: start: 20160222, end: 20160321
  5. DAPAGLIFLOZIN [Suspect]
     Active Substance: DAPAGLIFLOZIN
     Route: 048
     Dates: start: 20160321
  6. ATORVASTATIN [Concomitant]
     Active Substance: ATORVASTATIN
     Indication: BLOOD CHOLESTEROL INCREASED
     Dates: start: 20160112
  7. GLICLAZIDE [Concomitant]
     Active Substance: GLICLAZIDE
     Indication: BLOOD GLUCOSE INCREASED
     Dates: start: 20151016
  8. PREDNISOLONE. [Concomitant]
     Active Substance: PREDNISOLONE
     Dates: start: 20160222, end: 20160223
  9. LOSARTAN. [Concomitant]
     Active Substance: LOSARTAN
     Dates: start: 20151016
  10. METFORMIN [Concomitant]
     Active Substance: METFORMIN HYDROCHLORIDE
     Dates: start: 20151016
  11. SALBUTAMOL [Concomitant]
     Active Substance: ALBUTEROL
     Dosage: ONE OR TWO PUFFS UP TO FOUR
     Route: 055
     Dates: start: 20151016
  12. FLUTICASONE [Concomitant]
     Active Substance: FLUTICASONE\FLUTICASONE PROPIONATE
     Route: 055
     Dates: start: 20151016
  13. CETRABEN [Concomitant]
     Active Substance: PARAFFIN
     Dosage: APPLY FREQUENTLY SEVERAL TIMES THROUGHOUT THE DAY
     Dates: start: 20160307
  14. LANSOPRAZOLE. [Concomitant]
     Active Substance: LANSOPRAZOLE
     Dates: start: 20151016
  15. CLARITHROMYCIN. [Concomitant]
     Active Substance: CLARITHROMYCIN
     Indication: ANTIBIOTIC THERAPY
     Dates: start: 20160222, end: 20160229
  16. PRAVASTATIN [Concomitant]
     Active Substance: PRAVASTATIN\PRAVASTATIN SODIUM
     Dates: start: 20151016, end: 20160112

REACTIONS (1)
  - Atrial fibrillation [Not Recovered/Not Resolved]

NARRATIVE: CASE EVENT DATE: 20160321
